FAERS Safety Report 5431631-8 (Version None)
Quarter: 2007Q3

REPORT INFORMATION
  Report Type: 
  Country: None (occurrence: None)
  Receive Date: 20070830
  Receipt Date: 20070821
  Transmission Date: 20080115
  Serious: Yes (Life-Threatening, Hospitalization)
  Sender: FDA-Public Use
  Company Number: US-KINGPHARMUSA00001-K200701062

PATIENT

DRUGS (4)
  1. ALTACE [Suspect]
     Indication: ANGIOTENSIN CONVERTING ENZYME
  2. LITHIUM CARBONATE [Interacting]
     Indication: HYPOMANIA
     Dosage: 400 MG, BID
  3. FUROSEMIDE [Interacting]
     Indication: DIURETIC THERAPY
  4. AMILORIDE HYDROCHLORIDE [Concomitant]
     Indication: DIURETIC THERAPY

REACTIONS (14)
  - ANTIPSYCHOTIC DRUG LEVEL INCREASED [None]
  - BLOOD CREATININE INCREASED [None]
  - BLOOD OSMOLARITY INCREASED [None]
  - BLOOD SODIUM INCREASED [None]
  - BLOOD UREA INCREASED [None]
  - BODY TEMPERATURE INCREASED [None]
  - CONFUSIONAL STATE [None]
  - DRUG INTERACTION [None]
  - NEPHROGENIC DIABETES INSIPIDUS [None]
  - POLYURIA [None]
  - SOMNOLENCE [None]
  - URINE OSMOLARITY DECREASED [None]
  - URINE SODIUM DECREASED [None]
  - WHITE BLOOD CELL COUNT INCREASED [None]
